FAERS Safety Report 8387850-4 (Version None)
Quarter: 2012Q2

REPORT INFORMATION
  Report Type: 
  Country: None (occurrence: None)
  Receive Date: 20120525
  Receipt Date: 20120321
  Transmission Date: 20120825
  Serious: No
  Sender: FDA-Public Use
  Company Number: US-BRISTOL-MYERS SQUIBB COMPANY-16415556

PATIENT
  Age: 54 Year
  Sex: Female
  Weight: 75 kg

DRUGS (3)
  1. INSULIN [Suspect]
  2. METFORMIN HCL [Suspect]
     Dates: start: 20000101
  3. KOMBIGLYZE XR [Suspect]
     Dosage: 2.5MG/1000MG IS THE STRENGTH. 1DF= 2TAB

REACTIONS (10)
  - DRUG INEFFECTIVE [None]
  - BLOOD GLUCOSE INCREASED [None]
  - FEELING ABNORMAL [None]
  - MEDICATION RESIDUE [None]
  - BLOOD GLUCOSE DECREASED [None]
  - FATIGUE [None]
  - DIARRHOEA [None]
  - BLOOD POTASSIUM INCREASED [None]
  - HYPERTENSION [None]
  - WEIGHT DECREASED [None]
